FAERS Safety Report 12277022 (Version 2)
Quarter: 2016Q2

REPORT INFORMATION
  Report Type: Spontaneous
  Country: JP (occurrence: JP)
  Receive Date: 20160418
  Receipt Date: 20160427
  Transmission Date: 20160815
  Serious: Yes (Hospitalization, Other)
  Sender: FDA-Public Use
  Company Number: JP-MDT-ADR-2016-00690

PATIENT
  Age: 5 Year
  Sex: Male
  Weight: 18 kg

DRUGS (1)
  1. GABALON [Suspect]
     Active Substance: BACLOFEN
     Dosage: 135MCG/DAY
     Route: 037
     Dates: start: 20141021

REACTIONS (13)
  - C-reactive protein increased [Unknown]
  - Purulent discharge [Unknown]
  - Skin abrasion [Unknown]
  - White blood cell count increased [Unknown]
  - Cerebrospinal fluid leakage [Unknown]
  - Pocket erosion [Unknown]
  - Implant site infection [Recovering/Resolving]
  - Skin atrophy [Unknown]
  - Implant site dehiscence [Recovering/Resolving]
  - Medical device site swelling [Unknown]
  - Implant site extravasation [Unknown]
  - Medical device site erythema [Unknown]
  - Platelet count increased [Unknown]
